FAERS Safety Report 9002520 (Version 1)
Quarter: 2013Q1

REPORT INFORMATION
  Report Type: Spontaneous
  Country: BR (occurrence: BR)
  Receive Date: 20130107
  Receipt Date: 20130107
  Transmission Date: 20140127
  Serious: Yes (Other)
  Sender: FDA-Public Use
  Company Number: BR-JNJFOC-20121214313

PATIENT
  Age: 53 Year
  Sex: Female
  Weight: 65 kg

DRUGS (14)
  1. REMICADE [Suspect]
     Indication: CROHN^S DISEASE
     Route: 042
     Dates: start: 20120830
  2. REMICADE [Suspect]
     Indication: CROHN^S DISEASE
     Route: 042
     Dates: start: 201012
  3. REMICADE [Suspect]
     Indication: RHEUMATOID ARTHRITIS
     Route: 042
     Dates: start: 20120830
  4. REMICADE [Suspect]
     Indication: RHEUMATOID ARTHRITIS
     Route: 042
     Dates: start: 201012
  5. ALENDRONATE [Concomitant]
     Route: 048
  6. FOLIC ACID [Concomitant]
     Route: 048
  7. PREDNISONE [Concomitant]
     Route: 048
  8. CALCIUM CARBONATE [Concomitant]
     Route: 048
  9. OMEPRAZOLE [Concomitant]
     Route: 048
  10. VITAMIN D3 [Concomitant]
     Route: 048
  11. SODIUM DICLOFENAC [Concomitant]
     Route: 048
  12. HYDROXYCHLOROQUINE SULFATE [Concomitant]
     Route: 048
  13. FLUOXETIN [Concomitant]
     Route: 048
  14. PARACETAMOL [Concomitant]
     Route: 048

REACTIONS (2)
  - Hyperaemia [Recovered/Resolved]
  - Infusion related reaction [Recovered/Resolved]
